FAERS Safety Report 5989205-6 (Version None)
Quarter: 2008Q4

REPORT INFORMATION
  Report Type: 
  Country: None (occurrence: None)
  Receive Date: 20081210
  Receipt Date: 20081203
  Transmission Date: 20090506
  Serious: Yes (Other)
  Sender: FDA-Public Use
  Company Number: FR-ABBOTT-08P-056-0490981-00

PATIENT
  Age: 21 Year
  Sex: Male

DRUGS (3)
  1. KALETRA [Suspect]
     Indication: HIV INFECTION
     Route: 048
     Dates: start: 20080801, end: 20081203
  2. SULFAMETHOXAZOLE AND TRIMETHOPRIM [Concomitant]
     Indication: HIV INFECTION
     Dates: start: 20080801
  3. EMTRICITABINE, TENOFOVIR DISOPROXIL [Concomitant]
     Indication: HIV INFECTION
     Dates: start: 20080801

REACTIONS (6)
  - ABDOMINAL PAIN [None]
  - BLOOD ALKALINE PHOSPHATASE INCREASED [None]
  - CELL DEATH [None]
  - CHOLELITHIASIS [None]
  - CHOLESTASIS [None]
  - GAMMA-GLUTAMYLTRANSFERASE INCREASED [None]
